FAERS Safety Report 12625098 (Version 3)
Quarter: 2016Q4

REPORT INFORMATION
  Report Type: Spontaneous
  Country: US (occurrence: US)
  Receive Date: 20160805
  Receipt Date: 20161024
  Transmission Date: 20170207
  Serious: Yes (Hospitalization)
  Sender: FDA-Public Use
  Company Number: US-PFIZER INC-2016360682

PATIENT
  Age: 72 Year
  Sex: Male
  Weight: 97.52 kg

DRUGS (16)
  1. SUTENT [Suspect]
     Active Substance: SUNITINIB MALATE
     Dosage: 37.5 MG, UNK (37.5MG CAPSULE BY MOUTH ONCE A DAY FOR 2 WEEKS AND THEN 1 WEEK OFF)
     Route: 048
     Dates: start: 2016, end: 20161002
  2. COUMADINE [Suspect]
     Active Substance: WARFARIN SODIUM
     Indication: THROMBOSIS
     Dosage: 5 MG, DAILY
     Route: 048
  3. METOPROLOL /00376902/ [Concomitant]
     Active Substance: METOPROLOL
     Indication: BLOOD PRESSURE INCREASED
     Dosage: 50 MG, 2X/DAY
     Route: 048
  4. ALLOPURINOL. [Concomitant]
     Active Substance: ALLOPURINOL
     Indication: GOUT
     Dosage: 300 MG, DAILY (ONCE DAILY AS NEEDED)
     Route: 048
  5. METFORMIN [Suspect]
     Active Substance: METFORMIN HYDROCHLORIDE
     Indication: DIABETES MELLITUS
     Dosage: 1000 MG, 1X/DAY (IN THE MORNING)
     Route: 048
     Dates: start: 2014, end: 20161002
  6. ASPIRIN /00002701/ [Suspect]
     Active Substance: ASPIRIN
     Dosage: 81 MG, 1X/DAY
     Route: 048
     Dates: start: 2015, end: 20161002
  7. PROBENECID. [Concomitant]
     Active Substance: PROBENECID
     Dosage: 500 MG, 1X/DAY
     Route: 048
  8. ZOMETA [Concomitant]
     Active Substance: ZOLEDRONIC ACID
     Indication: BONE DISORDER
     Dosage: UNK (INTRAVENOUS INFUSION IN HIS ARM ONCE A MONTH OVER 20 MINUTES.)
     Route: 042
  9. SUTENT [Suspect]
     Active Substance: SUNITINIB MALATE
     Dosage: 37.5 MG, CYCLIC (28 DAY SUPPLY) (1 PO 6 DAY 2 WEEK OFF) (1 CAP PO DAILY X 2 WEEKS THEN 1 WEEK OFF.)
     Route: 048
  10. COUMADINE [Suspect]
     Active Substance: WARFARIN SODIUM
     Dosage: 10 MG, DAILY (2 TABLETS)
  11. ASPIRIN /00002701/ [Suspect]
     Active Substance: ASPIRIN
     Indication: THROMBOSIS
     Dosage: 81 MG, DAILY
     Route: 048
  12. SIMVASTATIN. [Concomitant]
     Active Substance: SIMVASTATIN
     Dosage: 10 MG, 1X/DAY
     Route: 048
  13. OCULAR LUBRICANT [Concomitant]
     Indication: DRY EYE
     Dosage: 1 GTT, 2X/DAY (2 TIMES A DAY; AS NEEDED: AS NEEDED FOR DRY EYES)
     Route: 047
  14. COUMADINE [Suspect]
     Active Substance: WARFARIN SODIUM
     Dosage: 2.5 DF, 1X/DAY (5 MG TABLET 2.5 TABLETS)
     Route: 048
     Dates: end: 20161002
  15. METOPROLOL /00376902/ [Concomitant]
     Active Substance: METOPROLOL
     Dosage: 50 MG, 1X/DAY
     Route: 048
  16. SUTENT [Suspect]
     Active Substance: SUNITINIB MALATE
     Indication: RENAL CANCER
     Dosage: UNK, CYCLIC (4 WEEKS AND THEN HAVING 2 WEEKS OFF)

REACTIONS (8)
  - Blood urine present [Recovered/Resolved]
  - Haemorrhage [Unknown]
  - Lip blister [Unknown]
  - Weight decreased [Unknown]
  - Epistaxis [Recovered/Resolved]
  - Oral mucosal blistering [Unknown]
  - Haematuria [Unknown]
  - Headache [Recovered/Resolved]

NARRATIVE: CASE EVENT DATE: 20160925
